FAERS Safety Report 4688327-X (Version None)
Quarter: 2005Q2

REPORT INFORMATION
  Report Type: 
  Country: None (occurrence: None)
  Receive Date: 20050609
  Receipt Date: 20050606
  Transmission Date: 20051028
  Serious: Yes (Death)
  Sender: FDA-Public Use
  Company Number: 2005S1000682

PATIENT
  Age: 4 Year
  Sex: Male

DRUGS (4)
  1. INOMAX [Suspect]
     Indication: VASODILATION PROCEDURE
     Dosage: 80 PPM;CONT
     Route: 055
     Dates: start: 20050603, end: 20050603
  2. SEVOFLURANE [Concomitant]
  3. MIDAZOLAM HCL [Concomitant]
  4. FENTANYL [Concomitant]

REACTIONS (7)
  - BRADYCARDIA [None]
  - HYPOTENSION [None]
  - HYPOXIA [None]
  - PROCEDURAL COMPLICATION [None]
  - PULMONARY HYPERTENSION [None]
  - RIGHT VENTRICULAR FAILURE [None]
  - VENTRICULAR FIBRILLATION [None]
